FAERS Safety Report 18108406 (Version 4)
Quarter: 2020Q4

REPORT INFORMATION
  Report Type: Spontaneous
  Country: CA (occurrence: CA)
  Receive Date: 20200803
  Receipt Date: 20201001
  Transmission Date: 20210113
  Serious: Yes (Other)
  Sender: FDA-Public Use
  Company Number: CA-CELLTRION INC.-2020CA022861

PATIENT

DRUGS (8)
  1. INFLECTRA [Suspect]
     Active Substance: INFLIXIMAB-DYYB
     Indication: CROHN^S DISEASE
     Dosage: 5 MG/KG (ROUNDED TO THE NEAREST VIAL) AT 0, 2, 6 WEEKS, THEN EVERY 8 WEEKS
     Route: 042
     Dates: start: 20200413
  2. PREDNISONE. [Concomitant]
     Active Substance: PREDNISONE
     Dosage: UNK
     Route: 065
     Dates: start: 20200318
  3. INFLECTRA [Suspect]
     Active Substance: INFLIXIMAB-DYYB
     Dosage: 5 MG/KG (ROUNDED TO THE NEAREST VIAL) AT 0, 2, 6 WEEKS, THEN EVERY 8 WEEKS
     Route: 042
     Dates: start: 20200601
  4. ESCITALOPRAM [Concomitant]
     Active Substance: ESCITALOPRAM OXALATE
     Dosage: UNK
     Route: 048
  5. INFLECTRA [Suspect]
     Active Substance: INFLIXIMAB-DYYB
     Dosage: 5 MG/KG (ROUNDED TO THE NEAREST VIAL) AT 0, 2, 6 WEEKS, THEN EVERY 8 WEEKS
     Route: 042
     Dates: start: 20200727
  6. INFLECTRA [Suspect]
     Active Substance: INFLIXIMAB-DYYB
     Dosage: 5 MG/KG (ROUNDED TO THE NEAREST VIAL) AT 0, 2, 6 WEEKS, THEN EVERY 8 WEEKS
     Route: 042
     Dates: start: 20200923
  7. MEZAVANT [Concomitant]
     Active Substance: MESALAMINE
     Dosage: 2 DF, 2X/DAY (1.2G 2 TABLETS) BID
     Route: 065
     Dates: start: 20200129
  8. VITAMIN D [ERGOCALCIFEROL] [Concomitant]
     Active Substance: ERGOCALCIFEROL
     Dosage: UNK, WEEKLY (ONCE A WEEK)
     Route: 048

REACTIONS (8)
  - Mucous stools [Unknown]
  - Maternal exposure during pregnancy [Unknown]
  - Alopecia [Unknown]
  - Haematochezia [Unknown]
  - Mouth ulceration [Unknown]
  - Anorectal discomfort [Unknown]
  - Skin laceration [Unknown]
  - Weight increased [Unknown]

NARRATIVE: CASE EVENT DATE: 2020
